FAERS Safety Report 8418376-7 (Version None)
Quarter: 2012Q2

REPORT INFORMATION
  Report Type: 
  Country: None (occurrence: None)
  Receive Date: 20120607
  Receipt Date: 20120604
  Transmission Date: 20120825
  Serious: Yes (Hospitalization, Other)
  Sender: FDA-Public Use
  Company Number: US-PFIZER INC-2012134550

PATIENT
  Sex: Male

DRUGS (3)
  1. GABAPENTIN [Suspect]
     Indication: NEURALGIA
     Dosage: 300 MG, DAILY
     Dates: start: 20090101
  2. ACETYLSALICYLIC ACID [Concomitant]
     Indication: CORONARY ARTERY THROMBOSIS
     Dosage: 81 MG, DAILY
  3. GABAPENTIN [Suspect]
     Indication: MUSCLE SPASMS

REACTIONS (6)
  - FLATULENCE [None]
  - COMA [None]
  - ABDOMINAL DISTENSION [None]
  - HYPOAESTHESIA [None]
  - DRY MOUTH [None]
  - NERVOUS SYSTEM DISORDER [None]
